FAERS Safety Report 24656688 (Version 4)
Quarter: 2025Q4

REPORT INFORMATION
  Report Type: Report from Study
  Country: US (occurrence: US)
  Receive Date: 20241124
  Receipt Date: 20251117
  Transmission Date: 20260117
  Serious: Yes (Hospitalization, Other)
  Sender: ABBVIE
  Company Number: US-ABBVIE-6012470

PATIENT
  Age: 60 Year
  Sex: Female
  Weight: 167.82 kg

DRUGS (5)
  1. SKYRIZI [Suspect]
     Active Substance: RISANKIZUMAB-RZAA
     Indication: Psoriatic arthropathy
     Dosage: UNKNOWN
     Route: 058
     Dates: start: 20240111
  2. SKYRIZI [Suspect]
     Active Substance: RISANKIZUMAB-RZAA
     Route: 058
  3. SKYRIZI [Suspect]
     Active Substance: RISANKIZUMAB-RZAA
     Route: 058
  4. OZEMPIC [Concomitant]
     Active Substance: SEMAGLUTIDE
     Indication: Diabetes mellitus
  5. TEZSPIRE [Concomitant]
     Active Substance: TEZEPELUMAB-EKKO
     Indication: Asthma

REACTIONS (8)
  - Pneumonia [Not Recovered/Not Resolved]
  - Device related infection [Recovering/Resolving]
  - Lower limb fracture [Recovering/Resolving]
  - COVID-19 [Recovered/Resolved]
  - Fall [Recovering/Resolving]
  - Asthma [Unknown]
  - Urinary tract infection [Recovered/Resolved]
  - Escherichia infection [Unknown]

NARRATIVE: CASE EVENT DATE: 20240901
